FAERS Safety Report 16037019 (Version 1)
Quarter: 2019Q1

REPORT INFORMATION
  Report Type: Spontaneous
  Country: DE (occurrence: DE)
  Receive Date: 20190305
  Receipt Date: 20190305
  Transmission Date: 20190418
  Serious: Yes (Hospitalization)
  Sender: FDA-Public Use
  Company Number: DE-TEVA-2019-DE-1018387

PATIENT
  Age: 11 Year
  Sex: Female
  Weight: 54 kg

DRUGS (3)
  1. SANDIMMUN OPTORAL [Suspect]
     Active Substance: CYCLOSPORINE
     Dosage: 190 MILLIGRAM DAILY; 190MG/DAY
     Route: 048
  2. PREDNISOLON [Suspect]
     Active Substance: PREDNISOLONE
     Indication: NEPHROTIC SYNDROME
     Dosage: 1 MG/KG, QOD
     Route: 065
     Dates: start: 1993
  3. SANDIMMUN OPTORAL [Suspect]
     Active Substance: CYCLOSPORINE
     Indication: NEPHROTIC SYNDROME
     Dosage: 250MG/DAY
     Route: 048
     Dates: start: 20010521

REACTIONS (7)
  - Papilloedema [Not Recovered/Not Resolved]
  - Idiopathic intracranial hypertension [Recovering/Resolving]
  - Vomiting [Not Recovered/Not Resolved]
  - Headache [Recovering/Resolving]
  - Diplopia [Not Recovered/Not Resolved]
  - Nausea [Recovering/Resolving]
  - Eye disorder [Recovering/Resolving]

NARRATIVE: CASE EVENT DATE: 20010526
